FAERS Safety Report 7479523-7 (Version None)
Quarter: 2011Q2

REPORT INFORMATION
  Report Type: 
  Country: None (occurrence: None)
  Receive Date: 20110513
  Receipt Date: 20110510
  Transmission Date: 20111010
  Serious: Yes (Death, Life-Threatening, Hospitalization)
  Sender: FDA-Public Use
  Company Number: JP-B.I. PHARMACEUTICALS,INC./RIDGEFIELD-2011-BP-08851NB

PATIENT
  Age: 81 Year
  Sex: Male

DRUGS (5)
  1. PRADAXA [Suspect]
     Indication: ATRIAL FIBRILLATION
     Dosage: 220 MG
     Route: 048
     Dates: start: 20110314, end: 20110322
  2. LASIX [Concomitant]
  3. ALDACTONE [Concomitant]
  4. BISOPROLOL FUMARATE [Concomitant]
  5. MUCOSTA [Concomitant]

REACTIONS (6)
  - ASPARTATE AMINOTRANSFERASE INCREASED [None]
  - BLOOD CREATININE INCREASED [None]
  - HEPATITIS FULMINANT [None]
  - ALANINE AMINOTRANSFERASE INCREASED [None]
  - CARDIAC FAILURE [None]
  - GENERAL PHYSICAL CONDITION ABNORMAL [None]
